FAERS Safety Report 7391566 (Version 3)
Quarter: 2012Q4

REPORT INFORMATION
  Report Type: Report from Study
  Country: JP (occurrence: JP)
  Receive Date: 20100518
  Receipt Date: 20121026
  Transmission Date: 20130627
  Serious: Yes (Hospitalization, Other)
  Sender: FDA-Public Use
  Company Number: JP-ROCHE-673578

PATIENT
  Age: 67 Year
  Sex: Female
  Weight: 43 kg

DRUGS (39)
  1. ACTEMRA [Suspect]
     Indication: RHEUMATOID ARTHRITIS
     Route: 042
     Dates: start: 20080605, end: 20080605
  2. ACTEMRA [Suspect]
     Route: 042
     Dates: start: 20080701, end: 20080701
  3. ACTEMRA [Suspect]
     Route: 042
     Dates: start: 20080722, end: 20080722
  4. ACTEMRA [Suspect]
     Route: 042
     Dates: start: 20080818, end: 20080818
  5. ACTEMRA [Suspect]
     Route: 042
     Dates: start: 20080908, end: 20080908
  6. ACTEMRA [Suspect]
     Route: 042
     Dates: start: 20081006, end: 20081006
  7. ACTEMRA [Suspect]
     Route: 042
     Dates: start: 20081027, end: 20081027
  8. ACTEMRA [Suspect]
     Route: 042
     Dates: start: 20081117, end: 20081117
  9. ACTEMRA [Suspect]
     Route: 042
     Dates: start: 20081215, end: 20081215
  10. ACTEMRA [Suspect]
     Route: 042
     Dates: start: 20090105, end: 20090105
  11. ACTEMRA [Suspect]
     Route: 042
     Dates: start: 20090202, end: 20090202
  12. ACTEMRA [Suspect]
     Route: 042
     Dates: start: 20090302, end: 20090302
  13. ACTEMRA [Suspect]
     Route: 042
     Dates: start: 20090406, end: 20090406
  14. ACTEMRA [Suspect]
     Route: 042
     Dates: start: 20090427, end: 20090427
  15. ACTEMRA [Suspect]
     Route: 042
     Dates: start: 20090525, end: 20090525
  16. ACTEMRA [Suspect]
     Route: 042
     Dates: start: 2009, end: 20091026
  17. ACTEMRA [Suspect]
     Dosage: Infusion rate decreased
     Route: 042
  18. PREDONINE [Concomitant]
     Indication: RHEUMATOID ARTHRITIS
     Route: 048
  19. PREDONINE [Concomitant]
     Route: 048
  20. PREDONINE [Concomitant]
     Route: 048
  21. MARZULENE [Concomitant]
     Indication: GASTRITIS
     Route: 048
  22. MARZULENE [Concomitant]
     Route: 048
  23. JUVELA N [Concomitant]
     Route: 048
  24. JUVELA N [Concomitant]
     Route: 048
  25. OPALMON [Concomitant]
     Indication: RAYNAUD^S PHENOMENON
     Route: 048
  26. BONALON [Concomitant]
     Route: 048
  27. BONALON [Concomitant]
     Route: 048
  28. MOHRUS [Concomitant]
     Indication: RHEUMATOID ARTHRITIS
     Dosage: FORM: TAPE. SINGLE USE. NOTE: TAKEN AS NEEDED.
     Route: 061
  29. VOLTAREN [Concomitant]
     Indication: RHEUMATOID ARTHRITIS
     Dosage: SINGLE USE. NOTE: TAKEN AS NEEDED.
     Route: 061
  30. PARIET [Concomitant]
     Indication: GASTROOESOPHAGEAL REFLUX DISEASE
     Route: 048
  31. MOBIC [Concomitant]
     Indication: RHEUMATOID ARTHRITIS
     Route: 048
  32. NORVASC [Concomitant]
     Indication: HYPERTENSION
     Route: 048
  33. ACTEMRA [Concomitant]
     Route: 041
  34. PREDNISOLONE [Concomitant]
     Route: 048
  35. PREDNISOLONE [Concomitant]
     Route: 048
  36. PREDNISOLONE [Concomitant]
     Route: 048
  37. URSO [Concomitant]
     Indication: BILIARY CIRRHOSIS PRIMARY
     Route: 048
  38. BARACLUDE [Concomitant]
     Indication: HEPATITIS B
     Route: 048
  39. PROGRAF [Concomitant]
     Route: 065
     Dates: start: 20071225

REACTIONS (8)
  - Infection [Recovered/Resolved]
  - Pyrexia [Recovered/Resolved]
  - Intestinal obstruction [Unknown]
  - Injection site swelling [Recovered/Resolved]
  - Infusion site erythema [Recovered/Resolved]
  - Infusion site pruritus [Recovered/Resolved]
  - Erythema [Unknown]
  - Cellulitis [Recovered/Resolved]
